FAERS Safety Report 5689529-6 (Version None)
Quarter: 2008Q1

REPORT INFORMATION
  Report Type: 
  Country: None (occurrence: None)
  Receive Date: 20080331
  Receipt Date: 20080325
  Transmission Date: 20080703
  Serious: Yes (Other)
  Sender: FDA-Public Use
  Company Number: GB-AMGEN-US269027

PATIENT
  Sex: Female

DRUGS (7)
  1. ENBREL [Suspect]
     Indication: RHEUMATOID ARTHRITIS
     Route: 058
     Dates: start: 20071126
  2. CODEINE SUL TAB [Concomitant]
     Dosage: UNKNOWN
     Route: 065
  3. SULFASALAZINE [Concomitant]
     Indication: RHEUMATOID ARTHRITIS
     Route: 048
     Dates: start: 19990101
  4. SALBUTAMOL [Concomitant]
     Dosage: UNKNOWN
     Route: 065
  5. SIMVASTATIN [Concomitant]
     Route: 048
  6. ATENOLOL [Concomitant]
     Route: 048
  7. ACETAMINOPHEN [Concomitant]
     Dosage: UNKNOWN
     Route: 065

REACTIONS (1)
  - EAR CONGESTION [None]
